FAERS Safety Report 4389664-9 (Version None)
Quarter: 2004Q2

REPORT INFORMATION
  Report Type: 
  Country: None (occurrence: None)
  Receive Date: 20040629
  Receipt Date: 20040115
  Transmission Date: 20050107
  Serious: Yes (Hospitalization, Other)
  Sender: FDA-Public Use
  Company Number: US-JNJFOC-20031105238

PATIENT
  Age: 32 Year
  Sex: Male

DRUGS (1)
  1. DURAGESIC [Suspect]
     Indication: PAIN
     Dosage: 100 UG/HR, ORAL
     Route: 048
     Dates: start: 20030901, end: 20031122

REACTIONS (2)
  - DRUG ABUSER [None]
  - RESPIRATORY DEPRESSION [None]
